FAERS Safety Report 4922114-X (Version None)
Quarter: 2006Q1

REPORT INFORMATION
  Report Type: 
  Country: None (occurrence: None)
  Receive Date: 20060222
  Receipt Date: 20060222
  Transmission Date: 20060701
  Serious: Yes (Hospitalization)
  Sender: FDA-Public Use
  Company Number: None

PATIENT
  Age: 79 Year
  Sex: Male
  Weight: 82 kg

DRUGS (3)
  1. CITALOPRAM [Suspect]
     Indication: AGITATION
     Dosage: 40 MG QAM PO
     Route: 048
     Dates: start: 20050314, end: 20051106
  2. CITALOPRAM [Suspect]
     Indication: DEMENTIA ALZHEIMER'S TYPE
     Dosage: 40 MG QAM PO
     Route: 048
     Dates: start: 20050314, end: 20051106
  3. FELODIPINE [Suspect]
     Indication: HYPERTENSION
     Dosage: 5 MG DAILY PO
     Route: 048
     Dates: start: 20050705, end: 20051107

REACTIONS (1)
  - SWOLLEN TONGUE [None]
